FAERS Safety Report 10654278 (Version 1)
Quarter: 2014Q4

REPORT INFORMATION
  Report Type: Spontaneous
  Country: US (occurrence: None)
  Receive Date: 20141215
  Receipt Date: 20141215
  Transmission Date: 20150529
  Serious: No
  Sender: FDA-Public Use
  Company Number: None

PATIENT
  Age: 79 Year
  Sex: Male
  Weight: 73.48 kg

DRUGS (12)
  1. AMIODARONE HCL [Concomitant]
     Active Substance: AMIODARONE HYDROCHLORIDE
  2. PROBIOTIC [Concomitant]
     Active Substance: PROBIOTICS NOS
  3. RESVERATROLL [Concomitant]
  4. LIPITOR ATORVASTATIN [Concomitant]
  5. BABY ASPIRIN [Concomitant]
     Active Substance: ASPIRIN
  6. HYDRALAZINE HCL [Concomitant]
     Active Substance: HYDRALAZINE HYDROCHLORIDE
  7. TRENTAL [Concomitant]
     Active Substance: PENTOXIFYLLINE
  8. FLUOROURACIL. [Suspect]
     Active Substance: FLUOROURACIL
     Indication: SKIN EXFOLIATION
     Dosage: 2 FINGER OR 1 TEASPOON, ONCE AT BEDTIME
     Route: 061
     Dates: start: 20141120, end: 20141121
  9. PLAVIX CLOPIDOGREL [Concomitant]
  10. VITAMINS [Concomitant]
     Active Substance: VITAMINS
  11. FISH OIL [Concomitant]
     Active Substance: FISH OIL
  12. PROBIOTIC [Concomitant]
     Active Substance: PROBIOTICS NOS

REACTIONS (2)
  - Product quality issue [None]
  - Pruritus [None]

NARRATIVE: CASE EVENT DATE: 20141120
